FAERS Safety Report 5974275-1 (Version None)
Quarter: 2008Q4

REPORT INFORMATION
  Report Type: 
  Country: None (occurrence: None)
  Receive Date: 20081128
  Receipt Date: 20081121
  Transmission Date: 20090506
  Serious: Yes (Death)
  Sender: FDA-Public Use
  Company Number: US020247

PATIENT
  Age: 34 Year
  Sex: Female
  Weight: 76.6579 kg

DRUGS (1)
  1. FENTORA [Suspect]
     Indication: HEADACHE
     Dosage: 400 UG UNK BUCCAL
     Route: 002
     Dates: start: 20070516, end: 20070517

REACTIONS (5)
  - ACCIDENTAL OVERDOSE [None]
  - DRUG PRESCRIBING ERROR [None]
  - DRUG TOXICITY [None]
  - SOMNOLENCE [None]
  - SUICIDAL IDEATION [None]
